FAERS Safety Report 9125759 (Version 3)
Quarter: 2013Q3

REPORT INFORMATION
  Report Type: Report from Study
  Country: JP (occurrence: JP)
  Receive Date: 20130228
  Receipt Date: 20130905
  Transmission Date: 20140515
  Serious: Yes (Death, Other)
  Sender: FDA-Public Use
  Company Number: JP-009507513-2012SP027945

PATIENT
  Age: 19 Year
  Sex: Male
  Weight: 48 kg

DRUGS (9)
  1. TEMOZOLOMIDE [Suspect]
     Indication: GLIOBLASTOMA MULTIFORME
     Dosage: 150 MG/M2, QD
     Route: 041
     Dates: start: 20120305, end: 20120309
  2. TEMODAL [Suspect]
     Indication: GLIOBLASTOMA MULTIFORME
     Dosage: DAILY DOSAGE UNKNOWN
     Route: 048
     Dates: start: 20100519, end: 20120208
  3. FERON [Concomitant]
     Route: 041
     Dates: start: 20120305, end: 20120305
  4. FRUCTOSE (+) GLYCERIN [Concomitant]
     Dosage: UNK, UNK
     Route: 041
     Dates: start: 20120301, end: 20120414
  5. ORGADRONE INJECTION 1.9MG [Concomitant]
     Dosage: UNK
     Route: 042
     Dates: start: 20120309, end: 20120326
  6. ALEVIATIN [Concomitant]
     Dosage: UNK
     Route: 048
     Dates: start: 20100506, end: 20120415
  7. DEXAMETHASONE [Concomitant]
     Dosage: UNK
     Route: 048
     Dates: start: 20120302, end: 20120415
  8. TAKEPRON [Concomitant]
     Indication: PROPHYLAXIS
     Dosage: UNK, UNK
     Route: 048
     Dates: start: 20120302, end: 20120415
  9. KEPPRA [Concomitant]
     Dosage: UNK, UNK, POR
     Route: 048
     Dates: start: 20120222, end: 20120415

REACTIONS (7)
  - Disease progression [Fatal]
  - Gamma-glutamyltransferase increased [Not Recovered/Not Resolved]
  - Vomiting [Recovering/Resolving]
  - Epilepsy [Recovering/Resolving]
  - Epilepsy [Recovering/Resolving]
  - Lymphocyte percentage decreased [Not Recovered/Not Resolved]
  - Urinary tract infection [Recovering/Resolving]
